FAERS Safety Report 6484797-5 (Version None)
Quarter: 2009Q4

REPORT INFORMATION
  Report Type: 
  Country: None (occurrence: None)
  Receive Date: 20091209
  Receipt Date: 20090312
  Transmission Date: 20100525
  Serious: No
  Sender: FDA-Public Use
  Company Number: A0773053A

PATIENT
  Sex: Female

DRUGS (4)
  1. AVANDAMET [Suspect]
     Route: 048
  2. METFORMIN HCL [Suspect]
  3. HYDROCHLOROTHIAZIDE [Concomitant]
  4. UNSPECIFIED MEDICATIONS [Concomitant]

REACTIONS (2)
  - GASTROINTESTINAL DISORDER [None]
  - OEDEMA [None]
